FAERS Safety Report 16873839 (Version 3)
Quarter: 2019Q4

REPORT INFORMATION
  Report Type: Report from Study
  Country: FR (occurrence: FR)
  Receive Date: 20191001
  Receipt Date: 20191030
  Transmission Date: 20200122
  Serious: Yes (Hospitalization)
  Sender: FDA-Public Use
  Company Number: FR-PFIZER INC-2019413835

PATIENT
  Age: 85 Year
  Sex: Female
  Weight: 48 kg

DRUGS (4)
  1. PARACETAMOL [Concomitant]
     Active Substance: ACETAMINOPHEN
     Dosage: UNK UNK, AS NEEDED
     Route: 048
  2. IBRANCE [Suspect]
     Active Substance: PALBOCICLIB
     Indication: BREAST CANCER
     Dosage: 125 MG, CYCLIC (DAILY, 3 WEEKS OUT OF 4)
     Dates: start: 20190508, end: 20190901
  3. EXEMESTANE. [Concomitant]
     Active Substance: EXEMESTANE
     Indication: BREAST CANCER
     Dosage: UNK
     Route: 048
     Dates: start: 20181129
  4. XGEVA [Concomitant]
     Active Substance: DENOSUMAB
     Indication: ALVEOLAR BONE RESORPTION
     Dosage: UNK
     Route: 058
     Dates: start: 20190122

REACTIONS (2)
  - Thrombocytopenia [Recovered/Resolved]
  - Lung disorder [Recovered/Resolved]

NARRATIVE: CASE EVENT DATE: 20190901
